FAERS Safety Report 8176713-5 (Version None)
Quarter: 2012Q1

REPORT INFORMATION
  Report Type: 
  Country: None (occurrence: None)
  Receive Date: 20120228
  Receipt Date: 20120215
  Transmission Date: 20120608
  Serious: Yes (Death, Hospitalization)
  Sender: FDA-Public Use
  Company Number: 2012ST000154

PATIENT
  Age: 72 Year
  Sex: Male

DRUGS (2)
  1. CARNITOR [Suspect]
     Indication: PRODUCT USED FOR UNKNOWN INDICATION
     Dates: end: 20120206
  2. SODIUM NITROPRUSSIDE [Concomitant]

REACTIONS (12)
  - CARDIOMEGALY [None]
  - LOSS OF CONSCIOUSNESS [None]
  - RESPIRATORY ARREST [None]
  - PALPITATIONS [None]
  - OEDEMA PERIPHERAL [None]
  - TACHYPNOEA [None]
  - VENTRICULAR FIBRILLATION [None]
  - MYDRIASIS [None]
  - CARDIAC FAILURE [None]
  - CONGESTIVE CARDIOMYOPATHY [None]
  - CARDIAC ARREST [None]
  - SUDDEN DEATH [None]
